FAERS Safety Report 18269673 (Version 2)
Quarter: 2020Q4

REPORT INFORMATION
  Report Type: Spontaneous
  Country: DE (occurrence: DE)
  Receive Date: 20200915
  Receipt Date: 20201024
  Transmission Date: 20210113
  Serious: Yes (Other)
  Sender: FDA-Public Use
  Company Number: NVSC2020DE216125

PATIENT
  Sex: Female
  Weight: 47 kg

DRUGS (7)
  1. MAYZENT [Suspect]
     Active Substance: SIPONIMOD
     Dosage: 0.25 MG, QID
     Route: 065
     Dates: start: 2020, end: 2020
  2. PREGABALIN. [Concomitant]
     Active Substance: PREGABALIN
     Indication: PRODUCT USED FOR UNKNOWN INDICATION
     Dosage: UNK
     Route: 065
  3. VIT D [Concomitant]
     Active Substance: VITAMIN D NOS
     Indication: PRODUCT USED FOR UNKNOWN INDICATION
     Dosage: UNK
     Route: 065
  4. MAYZENT [Suspect]
     Active Substance: SIPONIMOD
     Dosage: 0.75 MG, QD (FOR ONE MONTH)
     Route: 065
  5. MAYZENT [Suspect]
     Active Substance: SIPONIMOD
     Indication: SECONDARY PROGRESSIVE MULTIPLE SCLEROSIS
     Dosage: 0.25 MG, TITRATION TO 2MG DAILY
     Route: 065
     Dates: start: 202006, end: 2020
  6. MAYZENT [Suspect]
     Active Substance: SIPONIMOD
     Dosage: 0.25 MG, TID
     Route: 048
     Dates: start: 2020, end: 20200907
  7. FAMPYRA [Concomitant]
     Active Substance: DALFAMPRIDINE
     Indication: GAIT DISTURBANCE
     Dosage: 10 MG, BID
     Route: 048

REACTIONS (24)
  - Eye contusion [Recovering/Resolving]
  - Diplopia [Unknown]
  - Abdominal pain [Unknown]
  - Palpitations [Unknown]
  - Fatigue [Unknown]
  - Gait disturbance [Recovering/Resolving]
  - Weight decreased [Unknown]
  - Nausea [Unknown]
  - Multiple sclerosis relapse [Recovering/Resolving]
  - Haematoma [Recovering/Resolving]
  - Visual impairment [Unknown]
  - Depressed mood [Unknown]
  - Dizziness [Recovered/Resolved]
  - Drug intolerance [Unknown]
  - Sleep disorder [Unknown]
  - Decreased appetite [Unknown]
  - Visual acuity reduced [Unknown]
  - Incorrect dose administered [Unknown]
  - Right hemisphere deficit syndrome [Recovering/Resolving]
  - Ageusia [Recovered/Resolved]
  - Vision blurred [Unknown]
  - Paresis [Unknown]
  - Fall [Recovering/Resolving]
  - Malaise [Recovered/Resolved]

NARRATIVE: CASE EVENT DATE: 202007
